FAERS Safety Report 25748331 (Version 1)
Quarter: 2025Q3

REPORT INFORMATION
  Report Type: Report from Study
  Country: US (occurrence: US)
  Receive Date: 20250902
  Receipt Date: 20250902
  Transmission Date: 20251020
  Serious: Yes (Other)
  Sender: ABBVIE
  Company Number: US-ABBVIE-6437443

PATIENT
  Age: 62 Year
  Sex: Male

DRUGS (1)
  1. VYALEV [Suspect]
     Active Substance: FOSCARBIDOPA\FOSLEVODOPA
     Indication: Parkinson^s disease
     Route: 058
     Dates: start: 20241125

REACTIONS (8)
  - Rotator cuff repair [Unknown]
  - Balance disorder [Unknown]
  - Catheter site induration [Not Recovered/Not Resolved]
  - Catheter site scar [Not Recovered/Not Resolved]
  - Catheter site swelling [Recovering/Resolving]
  - Fall [Unknown]
  - Tooth extraction [Unknown]
  - Product storage error [Unknown]

NARRATIVE: CASE EVENT DATE: 20250826
